FAERS Safety Report 20940275 (Version 2)
Quarter: 2022Q2

REPORT INFORMATION
  Report Type: Spontaneous
  Country: NL (occurrence: NL)
  Receive Date: 20220609
  Receipt Date: 20220623
  Transmission Date: 20220721
  Serious: Yes (Other)
  Sender: FDA-Public Use
  Company Number: NL-TEVA-2022-NL-2043514

PATIENT
  Age: 23 Year
  Sex: Male

DRUGS (4)
  1. ARIPIPRAZOLE [Suspect]
     Active Substance: ARIPIPRAZOLE
     Indication: Niemann-Pick disease
     Dosage: MAINTENANCE THERAPY
     Route: 065
  2. LORAZEPAM [Suspect]
     Active Substance: LORAZEPAM
     Indication: Niemann-Pick disease
     Dosage: (MAXIMUM 24 MG/24 H)
     Route: 065
  3. LORAZEPAM [Suspect]
     Active Substance: LORAZEPAM
     Dosage: (MAXIMUM 7.5 MG/24 H)
     Route: 048
  4. MIGLUSTAT [Suspect]
     Active Substance: MIGLUSTAT
     Indication: Niemann-Pick disease
     Route: 065

REACTIONS (7)
  - Paradoxical drug reaction [Unknown]
  - Extrapyramidal disorder [Unknown]
  - Headache [Recovering/Resolving]
  - Asthenia [Recovering/Resolving]
  - Cognitive disorder [Recovering/Resolving]
  - Depressed mood [Recovering/Resolving]
  - Drug ineffective [Unknown]
